FAERS Safety Report 21238328 (Version 2)
Quarter: 2022Q3

REPORT INFORMATION
  Report Type: Spontaneous
  Country: US (occurrence: US)
  Receive Date: 20220822
  Receipt Date: 20220908
  Transmission Date: 20221027
  Serious: Yes (Other)
  Sender: FDA-Public Use
  Company Number: US-PFIZER INC-202201074221

PATIENT
  Age: 62 Year
  Sex: Female
  Weight: 72.57 kg

DRUGS (2)
  1. XELJANZ [Suspect]
     Active Substance: TOFACITINIB CITRATE
     Indication: Rheumatoid arthritis
     Dosage: 5 MG, 2X/DAY
     Route: 048
     Dates: start: 202109
  2. HOMEOPATHICS [Concomitant]
     Active Substance: HOMEOPATHICS
     Dosage: BEEN ON IT FOR A WHILE

REACTIONS (4)
  - Poor quality sleep [Unknown]
  - Anxiety [Unknown]
  - Depressed mood [Unknown]
  - Asthenia [Unknown]
